FAERS Safety Report 6318493-1 (Version None)
Quarter: 2009Q3

REPORT INFORMATION
  Report Type: 
  Country: None (occurrence: None)
  Receive Date: 20090821
  Receipt Date: 20090819
  Transmission Date: 20100115
  Serious: Yes (Death, Other)
  Sender: FDA-Public Use
  Company Number: US-BRISTOL-MYERS SQUIBB COMPANY-14747638

PATIENT
  Age: 74 Year
  Sex: Female

DRUGS (2)
  1. DASATINIB [Suspect]
  2. TASIGNA [Suspect]

REACTIONS (4)
  - DRUG INTOLERANCE [None]
  - EFFUSION [None]
  - FAILURE TO THRIVE [None]
  - MULTI-ORGAN FAILURE [None]
